FAERS Safety Report 5685182-6 (Version None)
Quarter: 2008Q1

REPORT INFORMATION
  Report Type: 
  Country: None (occurrence: None)
  Receive Date: 20080328
  Receipt Date: 20080317
  Transmission Date: 20080703
  Serious: Yes (Other)
  Sender: FDA-Public Use
  Company Number: GB-ELI_LILLY_AND_COMPANY-GB200803004489

PATIENT
  Age: 58 Year
  Sex: Female

DRUGS (4)
  1. EVISTA [Suspect]
     Indication: OSTEOPOROSIS
     Dosage: 60 MG, UNKNOWN
     Route: 065
     Dates: start: 20020101
  2. ESTROGEN NOS [Concomitant]
     Dosage: UNK, UNKNOWN
     Route: 065
     Dates: start: 20020101
  3. PROGESTERONE [Concomitant]
     Dosage: UNK, UNKNOWN
     Route: 065
     Dates: start: 20020101
  4. ALENDRONATE SODIUM [Concomitant]
     Dosage: UNK, UNKNOWN
     Route: 065
     Dates: start: 20020101

REACTIONS (3)
  - BREAST PAIN [None]
  - BREAST SWELLING [None]
  - UTERINE HAEMORRHAGE [None]
